FAERS Safety Report 5688662-2 (Version None)
Quarter: 2008Q1

REPORT INFORMATION
  Report Type: 
  Country: None (occurrence: None)
  Receive Date: 20080331
  Receipt Date: 20080319
  Transmission Date: 20080703
  Serious: Yes (Death, Hospitalization, Other)
  Sender: FDA-Public Use
  Company Number: PHBS2008AT03538

PATIENT
  Age: 59 Year
  Sex: Female

DRUGS (3)
  1. CYCLOSPORINE [Suspect]
     Indication: LIVER TRANSPLANT
     Dosage: UNK, UNK
     Route: 065
     Dates: start: 19990401
  2. MYCOPHENOLATE MOFETIL [Suspect]
     Indication: LIVER TRANSPLANT
     Dosage: UNK, UNK
     Route: 065
     Dates: start: 19990401
  3. PREDNISOLONE [Suspect]
     Indication: LIVER TRANSPLANT
     Dosage: UNK, UNK
     Route: 065
     Dates: start: 19990401

REACTIONS (10)
  - COMPLICATIONS OF TRANSPLANTED LIVER [None]
  - CYTOMEGALOVIRUS INFECTION [None]
  - ENTEROBACTER SEPSIS [None]
  - INFECTION [None]
  - INFECTIVE ANEURYSM [None]
  - LIVER TRANSPLANT [None]
  - LIVER TRANSPLANT REJECTION [None]
  - PSEUDALLESCHERIA INFECTION [None]
  - RENAL FAILURE [None]
  - WOUND INFECTION [None]
